FAERS Safety Report 9397386 (Version 2)
Quarter: 2013Q4

REPORT INFORMATION
  Report Type: Report from Study
  Country: FR (occurrence: FR)
  Receive Date: 20130712
  Receipt Date: 20131210
  Transmission Date: 20140711
  Serious: Yes (Death)
  Sender: FDA-Public Use
  Company Number: FR-CELGENEUS-056-C4047-12111862

PATIENT
  Sex: Female
  Weight: 46 kg

DRUGS (10)
  1. CC-4047 [Suspect]
     Indication: PLASMA CELL MYELOMA
     Dosage: 4 MILLIGRAM
     Route: 048
     Dates: start: 20120723
  2. CC-4047 [Suspect]
     Route: 048
     Dates: start: 20120731, end: 20120919
  3. DEXAMETHASONE [Concomitant]
     Indication: PLASMA CELL MYELOMA
     Route: 065
  4. ASPEGIC [Concomitant]
     Indication: THROMBOSIS PROPHYLAXIS
     Route: 065
  5. CLAMOXYL [Concomitant]
     Indication: THROMBOSIS PROPHYLAXIS
     Route: 065
  6. ZELITREX [Concomitant]
     Indication: THROMBOSIS PROPHYLAXIS
     Route: 065
  7. HYDRATATION [Concomitant]
     Indication: PRODUCT USED FOR UNKNOWN INDICATION
     Route: 065
  8. OXYGEN [Concomitant]
     Indication: PRODUCT USED FOR UNKNOWN INDICATION
     Route: 065
  9. CORTICOSTEROIDS [Concomitant]
     Indication: PRODUCT USED FOR UNKNOWN INDICATION
     Route: 065
  10. PARATHYROID HORMONE [Concomitant]
     Indication: PRODUCT USED FOR UNKNOWN INDICATION
     Route: 065
     Dates: start: 20101017

REACTIONS (2)
  - Plasma cell myeloma [Fatal]
  - Treatment noncompliance [Unknown]
